FAERS Safety Report 15074238 (Version 2)
Quarter: 2018Q3

REPORT INFORMATION
  Report Type: Report from Study
  Country: US (occurrence: US)
  Receive Date: 20180627
  Receipt Date: 20180705
  Transmission Date: 20181010
  Serious: Yes (Other)
  Sender: FDA-Public Use
  Company Number: US-PFIZER INC-2018112025

PATIENT
  Age: 56 Year
  Sex: Female

DRUGS (3)
  1. IBRANCE [Suspect]
     Active Substance: PALBOCICLIB
     Dosage: 75 MG, CYCLIC (75MG/QD FOR 5 DAYS ON, 2 DAYS OFF)
     Route: 048
     Dates: start: 20180301, end: 20180625
  2. IBRANCE [Suspect]
     Active Substance: PALBOCICLIB
     Dosage: 100 MG, CYCLIC  (DAILY FOR 21 DAYS)
     Route: 048
     Dates: start: 20180421, end: 20180513
  3. IBRANCE [Suspect]
     Active Substance: PALBOCICLIB
     Indication: BREAST CANCER
     Dosage: 125 MG, CYCLIC (DAILY/3 WEEKS ON, 1 WEEK OFF )
     Route: 048
     Dates: start: 20180228, end: 20180318

REACTIONS (17)
  - Constipation [Unknown]
  - Dysgeusia [Unknown]
  - Neoplasm progression [Unknown]
  - Red blood cell count decreased [Unknown]
  - Pain [Unknown]
  - Leukopenia [Recovering/Resolving]
  - Insomnia [Unknown]
  - Nausea [Unknown]
  - Dyspepsia [Unknown]
  - Fatigue [Not Recovered/Not Resolved]
  - Back pain [Unknown]
  - Vaginal haemorrhage [Unknown]
  - Blood pressure decreased [Unknown]
  - Weight decreased [Unknown]
  - Bone marrow failure [Unknown]
  - Decreased appetite [Unknown]
  - Hepatic enzyme increased [Recovering/Resolving]

NARRATIVE: CASE EVENT DATE: 2018
